FAERS Safety Report 14604428 (Version 6)
Quarter: 2018Q3

REPORT INFORMATION
  Report Type: Spontaneous
  Country: CA (occurrence: CA)
  Receive Date: 20180306
  Receipt Date: 20180906
  Transmission Date: 20181010
  Serious: Yes (Hospitalization, Other)
  Sender: FDA-Public Use
  Company Number: CA-CELLTRION INC.-2018CA018314

PATIENT

DRUGS (14)
  1. INFLECTRA [Suspect]
     Active Substance: INFLIXIMAB-DYYB
     Dosage: 290 MG, CYCLIC (EVERY 2, 6 WEEKS, THEN EVERY 8 WEEKS)
     Route: 042
     Dates: start: 20180207
  2. NICOTINE                           /01033302/ [Concomitant]
     Active Substance: NICOTINE
     Dosage: UNK
  3. INFLECTRA [Suspect]
     Active Substance: INFLIXIMAB-DYYB
     Indication: CROHN^S DISEASE
     Dosage: 290 MG, CYCLIC (EVERY 2, 6 WEEKS, THEN EVERY 8 WEEKS)
     Route: 042
     Dates: start: 20180124
  4. INFLECTRA [Suspect]
     Active Substance: INFLIXIMAB-DYYB
     Dosage: 290 MG, CYCLIC (EVERY 2, 6 WEEKS, THEN EVERY 8 WEEKS)
     Route: 042
     Dates: start: 20180502, end: 20180502
  5. AMIODARONE [Concomitant]
     Active Substance: AMIODARONE
     Dosage: UNK
  6. INFLECTRA [Suspect]
     Active Substance: INFLIXIMAB-DYYB
     Dosage: 580 EVERY 8 WEEKS;
     Route: 042
     Dates: start: 20180629
  7. INFLECTRA [Suspect]
     Active Substance: INFLIXIMAB-DYYB
     Dosage: 580 EVERY 8 WEEKS;
     Route: 042
     Dates: start: 20180822
  8. METOPROLOL. [Concomitant]
     Active Substance: METOPROLOL
     Dosage: UNK
  9. PRADAXA [Concomitant]
     Active Substance: DABIGATRAN ETEXILATE MESYLATE
     Dosage: UNK
  10. INFLECTRA [Suspect]
     Active Substance: INFLIXIMAB-DYYB
     Dosage: 290 MG, CYCLIC (EVERY 2, 6 WEEKS, THEN EVERY 8 WEEKS)
     Route: 042
     Dates: start: 20180307
  11. VENTOLIN [Concomitant]
     Active Substance: ALBUTEROL SULFATE
     Dosage: UNK
  12. LASIX [Concomitant]
     Active Substance: FUROSEMIDE
     Dosage: UNK
  13. ASA EC [Concomitant]
     Active Substance: ASPIRIN
     Dosage: UNK
  14. PANTOPRAZOLE [Concomitant]
     Active Substance: PANTOPRAZOLE
     Dosage: UNK

REACTIONS (35)
  - Haemoglobin abnormal [Unknown]
  - Anisocytosis [Unknown]
  - Hypochromasia [Unknown]
  - Microcytosis [Unknown]
  - Drug effect incomplete [Unknown]
  - Blood urea increased [Unknown]
  - Blood pressure fluctuation [Unknown]
  - Melaena [Unknown]
  - Prothrombin time prolonged [Not Recovered/Not Resolved]
  - Blood creatinine increased [Not Recovered/Not Resolved]
  - Mean cell haemoglobin concentration decreased [Unknown]
  - Reticulocyte count decreased [Unknown]
  - Faeces discoloured [Unknown]
  - Blood disorder [Unknown]
  - International normalised ratio increased [Unknown]
  - Mean cell volume decreased [Not Recovered/Not Resolved]
  - Monocyte count decreased [Unknown]
  - Red blood cell count decreased [Unknown]
  - Red blood cell abnormality [Unknown]
  - Tachycardia [Unknown]
  - Anaemia [Unknown]
  - Asthenia [Unknown]
  - Polychromasia [Unknown]
  - Red blood cell morphology abnormal [Unknown]
  - Reticulocyte count increased [Unknown]
  - Condition aggravated [Unknown]
  - Abnormal faeces [Unknown]
  - Angiodysplasia [Unknown]
  - Haematocrit decreased [Not Recovered/Not Resolved]
  - Mean cell haemoglobin decreased [Unknown]
  - Red blood cell elliptocytes present [Unknown]
  - Red cell distribution width increased [Unknown]
  - Drug level decreased [Unknown]
  - Platelet count increased [Unknown]
  - Heart rate increased [Unknown]

NARRATIVE: CASE EVENT DATE: 20180222
